FAERS Safety Report 7005308-1 (Version None)
Quarter: 2010Q3

REPORT INFORMATION
  Report Type: 
  Country: None (occurrence: None)
  Receive Date: 20100920
  Receipt Date: 20100920
  Transmission Date: 20110219
  Serious: Yes (Other)
  Sender: FDA-Public Use
  Company Number: None

PATIENT

DRUGS (1)
  1. DARVOCET-N 100 [Suspect]
     Dosage: GIVE 1-2 TABLETS PO EVERY 4-6 HOURS PRN PAIN

REACTIONS (2)
  - UNEVALUABLE EVENT [None]
  - VITAL FUNCTIONS ABNORMAL [None]
